FAERS Safety Report 5083154-6 (Version None)
Quarter: 2006Q3

REPORT INFORMATION
  Report Type: 
  Country: None (occurrence: None)
  Receive Date: 20060724
  Receipt Date: 20031121
  Transmission Date: 20061208
  Serious: Yes (Hospitalization)
  Sender: FDA-Public Use
  Company Number: DRON00206001428

PATIENT
  Age: 55 Year
  Sex: Female
  Weight: 37 kg

DRUGS (3)
  1. MARINOL [Suspect]
     Indication: MULTIPLE SCLEROSIS
     Dosage: 1 DOSAGE FORM QD ORAL DAILY DOSE: 1 DOSAGE FORM
     Route: 048
     Dates: start: 20020518, end: 20020716
  2. MARINOL [Suspect]
     Indication: MUSCLE SPASTICITY
     Dosage: 1 DOSAGE FORM QD ORAL DAILY DOSE: 1 DOSAGE FORM
     Route: 048
     Dates: start: 20020518, end: 20020716
  3. BACLOFEN [Concomitant]

REACTIONS (1)
  - PNEUMONIA [None]
